FAERS Safety Report 7287741-6 (Version None)
Quarter: 2011Q1

REPORT INFORMATION
  Report Type: 
  Country: None (occurrence: None)
  Receive Date: 20110211
  Receipt Date: 20110202
  Transmission Date: 20110831
  Serious: Yes (Life-Threatening, Hospitalization, Disabling, Other)
  Sender: FDA-Public Use
  Company Number: JP-MPIJNJ-2010-05318

PATIENT

DRUGS (2)
  1. DEXAMETHASONE [Concomitant]
     Dosage: 20 MG, UNK
  2. VELCADE [Suspect]
     Indication: MULTIPLE MYELOMA
     Dosage: 1.3 MG/M2, UNK
     Route: 042
     Dates: start: 20100809, end: 20100907

REACTIONS (6)
  - INTERSTITIAL LUNG DISEASE [None]
  - CYTOMEGALOVIRUS INFECTION [None]
  - POLYNEUROPATHY [None]
  - DIARRHOEA [None]
  - QUADRIPLEGIA [None]
  - ABDOMINAL DISTENSION [None]
